FAERS Safety Report 20199833 (Version 1)
Quarter: 2021Q4

REPORT INFORMATION
  Report Type: Spontaneous
  Country: US (occurrence: US)
  Receive Date: 20211217
  Receipt Date: 20211217
  Transmission Date: 20220303
  Serious: Yes (Other)
  Sender: FDA-Public Use
  Company Number: US-NOVARTISPH-NVSC2021US285930

PATIENT
  Age: 41 Year
  Sex: Male

DRUGS (6)
  1. RANITIDINE [Suspect]
     Active Substance: RANITIDINE
     Indication: Dyspepsia
     Dosage: 150-300 MG, QD
     Route: 065
     Dates: start: 201006, end: 201912
  2. RANITIDINE [Suspect]
     Active Substance: RANITIDINE
     Indication: Abdominal discomfort
  3. RANITIDINE [Suspect]
     Active Substance: RANITIDINE
     Indication: Gastric ulcer
  4. RANITIDINE [Suspect]
     Active Substance: RANITIDINE
     Indication: Dyspepsia
     Dosage: 150-300 MG, QD
     Route: 065
     Dates: start: 201006, end: 201912
  5. RANITIDINE [Suspect]
     Active Substance: RANITIDINE
     Indication: Abdominal discomfort
  6. RANITIDINE [Suspect]
     Active Substance: RANITIDINE
     Indication: Gastric ulcer

REACTIONS (5)
  - Oesophageal carcinoma [Unknown]
  - Lung carcinoma cell type unspecified stage III [Unknown]
  - Gastric cancer stage II [Unknown]
  - Haematological malignancy [Unknown]
  - Incorrect dose administered [Unknown]

NARRATIVE: CASE EVENT DATE: 20180901
